FAERS Safety Report 4931618-5 (Version None)
Quarter: 2006Q1

REPORT INFORMATION
  Report Type: 
  Country: None (occurrence: None)
  Receive Date: 20060303
  Receipt Date: 20060220
  Transmission Date: 20060701
  Serious: Yes (Hospitalization)
  Sender: FDA-Public Use
  Company Number: GB-KINGPHARMUSA00001-K200600251

PATIENT
  Age: 78 Year
  Sex: Female

DRUGS (9)
  1. LEVOXYL [Suspect]
     Indication: THYROIDECTOMY
     Dosage: 150 MCG, QD
     Dates: start: 19991101
  2. LEVOXYL [Suspect]
     Dosage: 175 MCG, QD
     Dates: end: 20000101
  3. LEVOXYL [Suspect]
     Dosage: 100 MCG, QD
  4. WARFARIN [Concomitant]
  5. CO-AMILOFRUSE [Concomitant]
  6. SIMVASTATIN [Concomitant]
  7. LANSOPRAZOLE [Concomitant]
  8. CALCIUM CARBONATE [Concomitant]
  9. NITRAZEPAM [Concomitant]

REACTIONS (19)
  - AGITATION [None]
  - ANXIETY [None]
  - ATRIAL FIBRILLATION [None]
  - BLOOD CREATINE PHOSPHOKINASE INCREASED [None]
  - BLOOD THYROID STIMULATING HORMONE DECREASED [None]
  - CHOREA [None]
  - DYSKINESIA [None]
  - DYSPHAGIA [None]
  - DYSPNOEA [None]
  - GAIT DISTURBANCE [None]
  - HYPERHIDROSIS [None]
  - HYPERTHYROIDISM [None]
  - OVERDOSE [None]
  - PALPITATIONS [None]
  - RALES [None]
  - SPEECH DISORDER [None]
  - TEMPERATURE INTOLERANCE [None]
  - THYROXINE FREE INCREASED [None]
  - VENOUS PRESSURE JUGULAR INCREASED [None]
